FAERS Safety Report 15547942 (Version 2)
Quarter: 2019Q3

REPORT INFORMATION
  Report Type: Report from Study
  Country: US (occurrence: US)
  Receive Date: 20181024
  Receipt Date: 20190911
  Transmission Date: 20191004
  Serious: Yes (Hospitalization, Other)
  Sender: FDA-Public Use
  Company Number: PHEH2018US044366

PATIENT
  Sex: Female

DRUGS (2)
  1. ENTRESTO [Suspect]
     Active Substance: SACUBITRIL\VALSARTAN
     Indication: CARDIAC FAILURE
     Dosage: UNK, QD
     Route: 048
  2. ENTRESTO [Suspect]
     Active Substance: SACUBITRIL\VALSARTAN
     Dosage: 1 DF, BID(49 MG OF SACUBITRIL/ 51 MG OF VALSARTAN)
     Route: 048

REACTIONS (16)
  - Musculoskeletal discomfort [Unknown]
  - White blood cell count decreased [Unknown]
  - Arthritis [Unknown]
  - Feeling abnormal [Unknown]
  - Panic attack [Unknown]
  - Joint swelling [Unknown]
  - Vertigo [Unknown]
  - Inappropriate schedule of product administration [Unknown]
  - Pneumonia aspiration [Unknown]
  - Chills [Unknown]
  - Blood pressure increased [Unknown]
  - Tremor [Unknown]
  - Nervousness [Unknown]
  - Malaise [Unknown]
  - Irritable bowel syndrome [Unknown]
  - Anxiety [Unknown]
